FAERS Safety Report 9203211 (Version 2)
Quarter: 2013Q2

REPORT INFORMATION
  Report Type: Spontaneous
  Country: US (occurrence: US)
  Receive Date: 20130402
  Receipt Date: 20130417
  Transmission Date: 20140414
  Serious: Yes (Hospitalization, Other)
  Sender: FDA-Public Use
  Company Number: US-JNJFOC-20130315695

PATIENT
  Sex: Male

DRUGS (10)
  1. XARELTO [Suspect]
     Indication: PRODUCT USED FOR UNKNOWN INDICATION
     Route: 048
     Dates: start: 20130304, end: 20130317
  2. WARFARIN [Suspect]
     Indication: PRODUCT USED FOR UNKNOWN INDICATION
     Route: 048
  3. ISOSORBIDE DINITRATE [Concomitant]
     Route: 048
  4. SIMVASTATIN [Concomitant]
     Route: 048
  5. UROCIT-K [Concomitant]
     Dosage: 1080 UNITS UNSPECIFIED
     Route: 048
  6. OMEGA-3 [Concomitant]
     Route: 048
  7. ENALAPRIL MALEATE [Concomitant]
     Route: 048
  8. HYDROCHLOROTHIAZIDE [Concomitant]
     Dosage: 50 UNITS UNSPECIFIED
     Route: 048
  9. METOPROLOL TARTRATE [Concomitant]
     Route: 048
     Dates: start: 20070830
  10. ALLOPURINOL [Concomitant]
     Dosage: 300 UNITS UNSPECIFIED
     Route: 048

REACTIONS (2)
  - Hospitalisation [Unknown]
  - Blood urine present [Recovered/Resolved]
